FAERS Safety Report 6480240-0 (Version None)
Quarter: 2009Q4

REPORT INFORMATION
  Report Type: 
  Country: None (occurrence: None)
  Receive Date: 20091202
  Receipt Date: 20091117
  Transmission Date: 20100525
  Serious: Yes (Death)
  Sender: FDA-Public Use
  Company Number: AE 2009-129

PATIENT
  Age: 54 Year
  Sex: Male
  Weight: 133.8111 kg

DRUGS (10)
  1. FAZACLO ODT [Suspect]
     Indication: SCHIZOPHRENIA
     Dosage: 600 MG QHS PO
     Route: 048
     Dates: start: 20071107, end: 20090526
  2. KLONOPIN [Concomitant]
  3. TOPAMAX [Concomitant]
  4. TRICOR [Concomitant]
  5. ZOCOR [Concomitant]
  6. JANUVIA [Concomitant]
  7. AMARYL [Concomitant]
  8. AVANDIA [Concomitant]
  9. PRILOSEC [Concomitant]
  10. LOXITANE [Concomitant]

REACTIONS (1)
  - CARDIOMEGALY [None]
